FAERS Safety Report 8384995-X (Version None)
Quarter: 2012Q2

REPORT INFORMATION
  Report Type: 
  Country: None (occurrence: None)
  Receive Date: 20120524
  Receipt Date: 20120518
  Transmission Date: 20120825
  Serious: Yes (Death, Hospitalization)
  Sender: FDA-Public Use
  Company Number: TW-BAXTER-2012BAX005747

PATIENT
  Sex: Male

DRUGS (3)
  1. DIANEAL LOW CALCIUM W/ DEXTROSE 2.5% [Suspect]
     Route: 033
  2. EXTRANEAL [Suspect]
     Route: 033
  3. DIANEAL LOW CALCIUM WITH DEXTROSE 2.5% AND CALCIUM 2.5MEQ/L [Suspect]
     Route: 033

REACTIONS (3)
  - PLEURISY [None]
  - CARDIOPULMONARY FAILURE [None]
  - PLEURAL EFFUSION [None]
